FAERS Safety Report 9859410 (Version 4)
Quarter: 2014Q3

REPORT INFORMATION
  Report Type: Report from Study
  Country: JP (occurrence: JP)
  Receive Date: 20140131
  Receipt Date: 20140701
  Transmission Date: 20150326
  Serious: Yes (Hospitalization)
  Sender: FDA-Public Use
  Company Number: JP-OTSUKA-JP-2014-10407

PATIENT
  Age: 90 Year
  Sex: Male
  Weight: 61.1 kg

DRUGS (4)
  1. SAMSCA [Suspect]
     Active Substance: TOLVAPTAN
     Indication: OEDEMA DUE TO CARDIAC DISEASE
     Dosage: 3.75 MG MILLIGRAM(S), QAM
     Route: 048
     Dates: start: 20131219, end: 20131225
  2. HEPARIN [Concomitant]
     Active Substance: HEPARIN SODIUM
     Indication: PROPHYLAXIS
     Dosage: 5 KIU IU(1000S), DAILY DOSE
     Route: 042
     Dates: start: 20131219, end: 20140107
  3. PICILLIBACTA [Suspect]
     Active Substance: AMPICILLIN SODIUM\SULBACTAM SODIUM
     Indication: PNEUMONIA ASPIRATION
     Dosage: 1.5 G GRAM(S), DAILY DOSE
     Route: 041
     Dates: start: 20131218, end: 20131220
  4. ROCEPHIN [Suspect]
     Active Substance: CEFTRIAXONE SODIUM
     Indication: PNEUMONIA ASPIRATION
     Dosage: 2 G GRAM(S), DAILY DOSE
     Route: 042
     Dates: start: 20131221, end: 20131222

REACTIONS (1)
  - Dermatitis exfoliative [Recovered/Resolved]

NARRATIVE: CASE EVENT DATE: 20131220
